FAERS Safety Report 16842504 (Version 1)
Quarter: 2019Q3

REPORT INFORMATION
  Report Type: Spontaneous
  Country: FR (occurrence: FR)
  Receive Date: 20190924
  Receipt Date: 20190924
  Transmission Date: 20191005
  Serious: Yes (Hospitalization)
  Sender: FDA-Public Use
  Company Number: FR-SUN PHARMACEUTICAL INDUSTRIES LTD-2019RR-221556

PATIENT
  Age: 90 Year
  Sex: Female

DRUGS (7)
  1. LEVODOPA [Suspect]
     Active Substance: LEVODOPA
     Indication: PRODUCT ADMINISTRATION ERROR
     Dosage: PRISE UNIQUE
     Route: 048
     Dates: start: 20190710, end: 20190710
  2. PERINDOPRIL [Suspect]
     Active Substance: PERINDOPRIL
     Indication: PRODUCT ADMINISTRATION ERROR
     Dosage: PRISE UNIQUE
     Route: 048
     Dates: start: 20190710, end: 20190710
  3. LEVOTHYROXINE SODIQUE [Suspect]
     Active Substance: LEVOTHYROXINE SODIUM
     Indication: PRODUCT ADMINISTRATION ERROR
     Dosage: PRISE UNIQUE
     Route: 048
     Dates: start: 20190710, end: 20190710
  4. AMLODIPINE [Suspect]
     Active Substance: AMLODIPINE BESYLATE
     Indication: PRODUCT ADMINISTRATION ERROR
     Dosage: PRISE UNIQUE
     Route: 048
     Dates: start: 20190710, end: 20190710
  5. CARBIDOPA. [Suspect]
     Active Substance: CARBIDOPA
     Indication: PRODUCT ADMINISTRATION ERROR
     Dosage: PRISE UNIQUE
     Route: 048
     Dates: start: 20190710, end: 20190710
  6. ENTACAPONE. [Suspect]
     Active Substance: ENTACAPONE
     Indication: PRODUCT ADMINISTRATION ERROR
     Dosage: PRISE UNIQUE
     Route: 048
     Dates: start: 20190710, end: 20190710
  7. CLOZAPINE BIOGARAN [Suspect]
     Active Substance: CLOZAPINE
     Indication: PRODUCT ADMINISTRATION ERROR
     Route: 048
     Dates: start: 20190710, end: 20190710

REACTIONS (5)
  - Depressed level of consciousness [Recovered/Resolved]
  - Ileus [Recovered/Resolved]
  - Vomiting [Recovered/Resolved]
  - Product administration error [Recovered/Resolved]
  - Coma [Recovered/Resolved]

NARRATIVE: CASE EVENT DATE: 20190710
